FAERS Safety Report 10777528 (Version 1)
Quarter: 2015Q1

REPORT INFORMATION
  Report Type: Spontaneous
  Country: FR (occurrence: FR)
  Receive Date: 20150209
  Receipt Date: 20150209
  Transmission Date: 20150721
  Serious: Yes (Death, Congenital Anomaly)
  Sender: FDA-Public Use
  Company Number: FR-PFIZER INC-2015047681

PATIENT
  Sex: Male

DRUGS (15)
  1. ZOPHREN [Suspect]
     Active Substance: ONDANSETRON
     Indication: COCHLEA IMPLANT
     Dosage: UNK
     Route: 064
     Dates: start: 20140604, end: 20140604
  2. TRAMADOL BASICS [Suspect]
     Active Substance: TRAMADOL
     Indication: COCHLEA IMPLANT
     Dosage: UNK
     Route: 064
     Dates: start: 20140604, end: 20140604
  3. SOLU-MEDROL [Suspect]
     Active Substance: METHYLPREDNISOLONE SODIUM SUCCINATE
     Indication: COCHLEA IMPLANT
     Dosage: UNK
     Route: 064
     Dates: start: 20140604, end: 20140604
  4. PROPOFOL. [Suspect]
     Active Substance: PROPOFOL
     Indication: COCHLEA IMPLANT
     Dosage: 1862 MG, UNK
     Route: 064
     Dates: start: 20140604, end: 20140604
  5. PERFALGAN [Suspect]
     Active Substance: ACETAMINOPHEN
     Indication: COCHLEA IMPLANT
     Dosage: 1000 MG, UNK
     Route: 064
     Dates: start: 20140604, end: 20140604
  6. NEFOPAM HYDROCHLORIDE [Suspect]
     Active Substance: NEFOPAM HYDROCHLORIDE
     Indication: COCHLEA IMPLANT
     Dosage: UNK
     Route: 064
     Dates: start: 20140604, end: 20140604
  7. PNEUMO 23 [Suspect]
     Active Substance: PNEUMOCOCCAL VACCINE, POLYVALENT 23
     Indication: COCHLEA IMPLANT
     Dosage: UNK
     Route: 064
  8. REMIFENTANIL HYDROCHLORIDE [Suspect]
     Active Substance: REMIFENTANIL HYDROCHLORIDE
     Indication: COCHLEA IMPLANT
     Dosage: 1.26 MG, UNK
     Route: 064
     Dates: start: 20140604, end: 20140604
  9. PROFENID [Suspect]
     Active Substance: KETOPROFEN
     Indication: COCHLEA IMPLANT
     Dosage: 100 MG, UNK
     Route: 064
     Dates: start: 20140604, end: 20140604
  10. MORPHINE SULFATE. [Suspect]
     Active Substance: MORPHINE SULFATE
     Indication: COCHLEA IMPLANT
     Dosage: UNK
     Route: 064
     Dates: start: 20140604, end: 20140604
  11. DROPERIDOL. [Suspect]
     Active Substance: DROPERIDOL
     Indication: COCHLEA IMPLANT
     Dosage: 1.25 MG, UNK
     Route: 064
     Dates: start: 20140604, end: 20140604
  12. EPHEDRINE [Suspect]
     Active Substance: EPHEDRINE
     Indication: COCHLEA IMPLANT
     Dosage: 6 MG, UNK
     Route: 064
     Dates: start: 20140604, end: 20140604
  13. PRIMPERAN [Suspect]
     Active Substance: METOCLOPRAMIDE HYDROCHLORIDE
     Indication: COCHLEA IMPLANT
     Dosage: UNK
     Route: 064
     Dates: start: 20140604, end: 20140604
  14. LIDOCAINE. [Suspect]
     Active Substance: LIDOCAINE
     Indication: COCHLEA IMPLANT
     Dosage: 30 MG, UNK
     Route: 064
     Dates: start: 20140604, end: 20140604
  15. AUGMENTIN [Suspect]
     Active Substance: AMOXICILLIN\CLAVULANATE POTASSIUM
     Indication: COCHLEA IMPLANT
     Dosage: UNK
     Route: 064
     Dates: start: 20140604, end: 20140604

REACTIONS (3)
  - Maternal exposure during pregnancy [Fatal]
  - Meningomyelocele [Fatal]
  - Abdominal wall anomaly [Fatal]

NARRATIVE: CASE EVENT DATE: 20140604
